FAERS Safety Report 6680248-6 (Version None)
Quarter: 2010Q2

REPORT INFORMATION
  Report Type: 
  Country: None (occurrence: None)
  Receive Date: 20100409
  Receipt Date: 20100326
  Transmission Date: 20101027
  Serious: Yes (Other)
  Sender: FDA-Public Use
  Company Number: 2010-00384

PATIENT
  Sex: Female

DRUGS (3)
  1. SERTRALINE HCL [Suspect]
     Indication: DEPRESSED MOOD
     Dosage: ORAL
     Route: 048
  2. CLOZAPINE (CLOZAPRIL) [Suspect]
     Indication: PARKINSON'S DISEASE
     Dosage: 200 MG (1 IN 1 D),ORAL ; 250 MG (1 IN 1 D),ORAL
     Route: 048
     Dates: start: 20091116
  3. CLOZAPINE [Concomitant]

REACTIONS (6)
  - ANTIPSYCHOTIC DRUG LEVEL INCREASED [None]
  - CONSTIPATION [None]
  - DRUG INTERACTION [None]
  - ELECTROCARDIOGRAM QT PROLONGED [None]
  - SALIVARY HYPERSECRETION [None]
  - TACHYCARDIA [None]
